FAERS Safety Report 23094159 (Version 2)
Quarter: 2023Q4

REPORT INFORMATION
  Report Type: Report from Study
  Country: US (occurrence: US)
  Receive Date: 20231023
  Receipt Date: 20231025
  Transmission Date: 20240110
  Serious: No
  Sender: FDA-Public Use
  Company Number: US-002147023-NVSC2023US223934

PATIENT
  Sex: Female

DRUGS (2)
  1. COSENTYX [Suspect]
     Active Substance: SECUKINUMAB
     Indication: Psoriasis
     Dosage: UNK
     Route: 065
  2. METHOTREXATE [Suspect]
     Active Substance: METHOTREXATE
     Indication: Psoriasis
     Dosage: UNK
     Route: 065

REACTIONS (10)
  - Arthralgia [Unknown]
  - Skin burning sensation [Unknown]
  - Psoriasis [Not Recovered/Not Resolved]
  - Rash [Unknown]
  - Pain of skin [Unknown]
  - Rash pruritic [Unknown]
  - Rash erythematous [Unknown]
  - Skin exfoliation [Unknown]
  - Skin plaque [Unknown]
  - Drug ineffective [Unknown]
